FAERS Safety Report 9936085 (Version 1)
Quarter: 2014Q1

REPORT INFORMATION
  Report Type: Spontaneous
  Country: US (occurrence: US)
  Receive Date: 20140228
  Receipt Date: 20140228
  Transmission Date: 20141002
  Serious: No
  Sender: FDA-Public Use
  Company Number: US-AMGEN-USASP2013079920

PATIENT
  Age: 35 Year
  Sex: Female

DRUGS (5)
  1. ENBREL [Suspect]
     Indication: PSORIASIS
     Dosage: 50 MG, 2 TIMES/WK
     Route: 065
     Dates: start: 20131031, end: 20131103
  2. LAMICTAL [Concomitant]
     Indication: CEREBROVASCULAR DISORDER
     Dosage: UNK
  3. LAMICTAL [Concomitant]
     Indication: MIGRAINE
  4. PROPANOLOL                         /00030001/ [Concomitant]
     Indication: CEREBROVASCULAR DISORDER
     Dosage: UNK
  5. PROPANOLOL                         /00030001/ [Concomitant]
     Indication: MIGRAINE

REACTIONS (5)
  - Asthenia [Not Recovered/Not Resolved]
  - Headache [Not Recovered/Not Resolved]
  - Nausea [Not Recovered/Not Resolved]
  - Respiratory tract congestion [Not Recovered/Not Resolved]
  - Vomiting [Recovered/Resolved]
